FAERS Safety Report 6935924-4 (Version None)
Quarter: 2010Q3

REPORT INFORMATION
  Report Type: 
  Country: None (occurrence: None)
  Receive Date: 20100823
  Receipt Date: 20100721
  Transmission Date: 20110219
  Serious: No
  Sender: FDA-Public Use
  Company Number: US-BAYER-201018684BCC

PATIENT
  Age: 81 Year
  Sex: Female
  Weight: 68 kg

DRUGS (4)
  1. ALEVE (CAPLET) [Suspect]
     Indication: ARTHRALGIA
     Dosage: TOTAL DAILY DOSE: 220 MG  UNIT DOSE: 220 MG
     Route: 048
     Dates: start: 20100721
  2. UNKNOWN DROPS FOR GLAUCOMA [Concomitant]
     Route: 065
  3. UNKNOWN HIGH BLOOD PRESSURE MEDICATION [Concomitant]
     Route: 065
  4. UNKNOWN POTASSIUM PILL [Concomitant]
     Route: 065

REACTIONS (1)
  - ARTHRALGIA [None]
